FAERS Safety Report 20922368 (Version 2)
Quarter: 2022Q3

REPORT INFORMATION
  Report Type: Spontaneous
  Country: US (occurrence: None)
  Receive Date: 20220607
  Receipt Date: 20220726
  Transmission Date: 20221026
  Serious: No
  Sender: FDA-Public Use
  Company Number: 2022A205154

PATIENT
  Age: 24867 Day
  Sex: Female

DRUGS (2)
  1. BYDUREON BCISE [Suspect]
     Active Substance: EXENATIDE
     Indication: Type 2 diabetes mellitus
     Route: 058
     Dates: start: 20220528
  2. INSULIN NOS [Concomitant]
     Active Substance: INSULIN NOS
     Indication: Type 2 diabetes mellitus

REACTIONS (4)
  - Injection site haemorrhage [Recovered/Resolved]
  - Incorrect dose administered by product [Not Recovered/Not Resolved]
  - Device defective [Unknown]
  - Device leakage [Unknown]

NARRATIVE: CASE EVENT DATE: 20220528
